FAERS Safety Report 11310018 (Version 1)
Quarter: 2015Q3

REPORT INFORMATION
  Report Type: Spontaneous
  Country: DE (occurrence: DE)
  Receive Date: 20150724
  Receipt Date: 20150724
  Transmission Date: 20151125
  Serious: Yes (Hospitalization)
  Sender: FDA-Public Use
  Company Number: DE-UCBSA-2014001612

PATIENT
  Age: 30 Year
  Sex: Female
  Weight: 70 kg

DRUGS (7)
  1. VIMPAT [Suspect]
     Active Substance: LACOSAMIDE
     Dosage: 150 MG, UNK
     Route: 048
  2. VALPROATE [Concomitant]
     Active Substance: VALPROATE SODIUM
     Dosage: 500 MG
  3. QUETIAPIN [Concomitant]
     Active Substance: QUETIAPINE
     Dosage: 50 MG
  4. GABAPENTIN. [Concomitant]
     Active Substance: GABAPENTIN
     Dosage: 50 MG
  5. LAMICTAL [Concomitant]
     Active Substance: LAMOTRIGINE
     Dosage: 50 MG
  6. RISPERDAL [Suspect]
     Active Substance: RISPERIDONE
     Dosage: STRENGHTH:100MG, 1 TABL, TOTAL AMOUNT: 1MG
     Route: 048
  7. TOPAMAX [Suspect]
     Active Substance: TOPIRAMATE
     Dosage: STRENGHTH:100MG AND 25 MG,1 TABL EACH,TOTAL AMOUNT: 125MG
     Route: 048

REACTIONS (1)
  - Accidental exposure to product [Unknown]

NARRATIVE: CASE EVENT DATE: 201406
